FAERS Safety Report 5238481-6 (Version None)
Quarter: 2007Q1

REPORT INFORMATION
  Report Type: 
  Country: None (occurrence: None)
  Receive Date: 20070215
  Receipt Date: 20070206
  Transmission Date: 20070707
  Serious: Yes (Other)
  Sender: FDA-Public Use
  Company Number: 2007UW00346

PATIENT
  Age: 47 Year
  Weight: 90.9 kg

DRUGS (3)
  1. SEROQUEL [Suspect]
     Dosage: 25-50 MG/DAILY
     Route: 048
     Dates: start: 20060401
  2. CELEXA [Concomitant]
  3. LITHIUM CARBONATE [Concomitant]

REACTIONS (4)
  - BLOOD CHOLESTEROL INCREASED [None]
  - BLOOD TRIGLYCERIDES INCREASED [None]
  - DIABETES MELLITUS [None]
  - DYSLIPIDAEMIA [None]
